FAERS Safety Report 16330561 (Version 1)
Quarter: 2019Q2

REPORT INFORMATION
  Report Type: Spontaneous
  Country: SE (occurrence: SE)
  Receive Date: 20190520
  Receipt Date: 20190520
  Transmission Date: 20190711
  Serious: Yes (Hospitalization)
  Sender: FDA-Public Use
  Company Number: SE-SA-2019SA130356

PATIENT
  Sex: Male

DRUGS (4)
  1. ELIQUIS [Concomitant]
     Active Substance: APIXABAN
     Indication: CARDIOVERSION
     Dosage: UNK UNK, BID
     Route: 065
     Dates: start: 20190213
  2. KAIRASEC [Concomitant]
     Active Substance: CANDESARTAN CILEXETIL
     Dosage: 8 MG, QD (IN THE EVENING)
     Route: 065
     Dates: start: 20190128
  3. BISOSTAD [BISOPROLOL FUMARATE] [Concomitant]
     Dosage: 2.5 MG (HALF PER DAY IN THE MORNING)
     Route: 065
     Dates: start: 20190123
  4. MULTAQ [Suspect]
     Active Substance: DRONEDARONE
     Dosage: 400 MG, BID
     Route: 065
     Dates: start: 20190319

REACTIONS (6)
  - Cardiac fibrillation [Recovered/Resolved]
  - Blood pressure fluctuation [Unknown]
  - Sleep disorder [Recovered/Resolved]
  - Hyperhidrosis [Unknown]
  - Cardioversion [Unknown]
  - Dizziness [Unknown]

NARRATIVE: CASE EVENT DATE: 20190326
